FAERS Safety Report 15410200 (Version 1)
Quarter: 2018Q3

REPORT INFORMATION
  Report Type: Report from Study
  Country: IT (occurrence: IT)
  Receive Date: 20180921
  Receipt Date: 20180921
  Transmission Date: 20181010
  Serious: Yes (Hospitalization)
  Sender: FDA-Public Use
  Company Number: IT-TEVA-2018-IT-956836

PATIENT
  Age: 55 Year
  Sex: Male

DRUGS (6)
  1. FLUOROURACILE AHCL 50 MG/ML, SOLUZIONE PER INIEZIONE O INFUSIONE [Suspect]
     Active Substance: FLUOROURACIL SODIUM
     Route: 042
     Dates: start: 20180625, end: 20180625
  2. DESAMETASONE FOSFATO HOSPIRA 4 MG/ML SOLUZIONE INIETTABILE [Concomitant]
     Route: 065
  3. CALCIO LEVOFOLINATO TEVA [Concomitant]
     Active Substance: LEVOLEUCOVORIN CALCIUM
     Route: 065
  4. ONDANSETRONE ACCORD HEALTHCARE [Concomitant]
     Route: 065
  5. OXALIPLATIN. [Suspect]
     Active Substance: OXALIPLATIN
     Indication: ADENOCARCINOMA OF COLON
     Route: 042
     Dates: start: 20180625, end: 20180625
  6. FLUOROURACILE AHCL 50 MG/ML, SOLUZIONE PER INIEZIONE O INFUSIONE [Suspect]
     Active Substance: FLUOROURACIL SODIUM
     Indication: ADENOCARCINOMA OF COLON
     Route: 042
     Dates: start: 20180626, end: 20180626

REACTIONS (5)
  - Abdominal pain [Unknown]
  - Diarrhoea [Unknown]
  - Hyperpyrexia [Unknown]
  - Asthenia [Unknown]
  - Leukopenia [Unknown]

NARRATIVE: CASE EVENT DATE: 20180702
